FAERS Safety Report 7964448-0 (Version None)
Quarter: 2011Q4

REPORT INFORMATION
  Report Type: 
  Country: None (occurrence: None)
  Receive Date: 20111208
  Receipt Date: 20111202
  Transmission Date: 20120403
  Serious: Yes (Other)
  Sender: FDA-Public Use
  Company Number: JP-AMGEN-JPNSP2011064660

PATIENT
  Sex: Female

DRUGS (2)
  1. PREDNISOLONE [Concomitant]
     Dosage: UNK
  2. ENBREL [Suspect]
     Indication: RHEUMATOID ARTHRITIS
     Dosage: UNK
     Route: 058
     Dates: start: 20110201, end: 20111201

REACTIONS (3)
  - PROTEIN URINE PRESENT [None]
  - BLOOD ALBUMIN DECREASED [None]
  - NEPHROTIC SYNDROME [None]
